FAERS Safety Report 4992785-0 (Version None)
Quarter: 2006Q1

REPORT INFORMATION
  Report Type: 
  Country: None (occurrence: None)
  Receive Date: 20060315
  Receipt Date: 20050531
  Transmission Date: 20060701
  Serious: Yes (Hospitalization)
  Sender: FDA-Public Use
  Company Number: US_0506118170

PATIENT
  Age: 77 Year
  Sex: Male

DRUGS (3)
  1. GEMZAR [Suspect]
     Dosage: 1880, INTRAVENOUS
     Route: 042
     Dates: start: 20050218
  2. INFLIXIMAB (INFLIXIMAB) [Concomitant]
  3. ALPHAGAN (BRIMONIDINE TRATATE) [Concomitant]

REACTIONS (3)
  - DEHYDRATION [None]
  - HAEMATOCRIT DECREASED [None]
  - HAEMOGLOBIN DECREASED [None]
